FAERS Safety Report 8367307-7 (Version None)
Quarter: 2012Q2

REPORT INFORMATION
  Report Type: 
  Country: None (occurrence: None)
  Receive Date: 20120517
  Receipt Date: 20120508
  Transmission Date: 20120825
  Serious: Yes (Hospitalization, Other)
  Sender: FDA-Public Use
  Company Number: US-ASTRAZENECA-2009SE19292

PATIENT
  Age: 54 Year
  Sex: Female

DRUGS (9)
  1. SEROQUEL [Suspect]
     Route: 048
  2. CLONIPINE [Concomitant]
     Indication: PANIC ATTACK
  3. VEGRA [Concomitant]
  4. SEROQUEL [Suspect]
     Indication: BIPOLAR DISORDER
     Route: 048
     Dates: start: 20080101
  5. SEROQUEL [Suspect]
     Dosage: 150 MG  AND 300 MG
     Route: 048
  6. LISINOPRIL [Concomitant]
  7. SEROQUEL [Suspect]
     Route: 048
  8. SEROQUEL [Suspect]
     Indication: STEVENS-JOHNSON SYNDROME
     Route: 048
     Dates: start: 20080101
  9. SEROQUEL [Suspect]
     Dosage: 150 MG  AND 300 MG
     Route: 048

REACTIONS (16)
  - DEPRESSION [None]
  - FEELING ABNORMAL [None]
  - ADVERSE EVENT [None]
  - DECREASED APPETITE [None]
  - OFF LABEL USE [None]
  - DRUG INEFFECTIVE [None]
  - MANIA [None]
  - MENTAL IMPAIRMENT [None]
  - AGORAPHOBIA [None]
  - AFFECT LABILITY [None]
  - SOMNOLENCE [None]
  - INTENTIONAL DRUG MISUSE [None]
  - INSOMNIA [None]
  - SUICIDAL IDEATION [None]
  - FATIGUE [None]
  - CONVULSION [None]
